FAERS Safety Report 14087017 (Version 1)
Quarter: 2017Q4

REPORT INFORMATION
  Report Type: Spontaneous
  Country: IL (occurrence: IL)
  Receive Date: 20171013
  Receipt Date: 20171013
  Transmission Date: 20180321
  Serious: Yes (Other)
  Sender: FDA-Public Use
  Company Number: IL-SA-2017SA198585

PATIENT
  Sex: Female

DRUGS (1)
  1. LANTUS [Suspect]
     Active Substance: INSULIN GLARGINE
     Route: 058
     Dates: start: 2015

REACTIONS (4)
  - Hyperglycaemia [Unknown]
  - Metastases to liver [Unknown]
  - Metastases to stomach [Unknown]
  - Pancreatic carcinoma [Unknown]
